FAERS Safety Report 16832147 (Version 1)
Quarter: 2019Q3

REPORT INFORMATION
  Report Type: Report from Study
  Country: ZA (occurrence: ZA)
  Receive Date: 20190920
  Receipt Date: 20190920
  Transmission Date: 20191005
  Serious: Yes (Other)
  Sender: FDA-Public Use
  Company Number: ZA-TAKEDA-2019TUS051389

PATIENT
  Age: 51 Year
  Sex: Female

DRUGS (4)
  1. VORTIOXETINE. [Suspect]
     Active Substance: VORTIOXETINE
     Dosage: 20 MILLIGRAM
     Route: 065
     Dates: end: 20180903
  2. SULPIRIDE [Concomitant]
     Active Substance: SULPIRIDE
     Indication: ANXIETY
     Dosage: 100 MILLIGRAM, 1/WEEK
     Route: 065
  3. CITALOPRAM [Suspect]
     Active Substance: CITALOPRAM HYDROBROMIDE
     Indication: DEPRESSION
     Dosage: UNK
     Route: 065
  4. VORTIOXETINE. [Suspect]
     Active Substance: VORTIOXETINE
     Indication: DEPRESSION
     Dosage: 10 MILLIGRAM
     Route: 065
     Dates: start: 201712

REACTIONS (9)
  - Lower respiratory tract infection [Unknown]
  - Anhedonia [Unknown]
  - Cough [Recovered/Resolved]
  - Fibromyalgia [Unknown]
  - Lower respiratory tract infection [Recovered/Resolved]
  - Blood iron decreased [Unknown]
  - Chronic fatigue syndrome [Not Recovered/Not Resolved]
  - Cognitive disorder [Unknown]
  - Fatigue [Not Recovered/Not Resolved]

NARRATIVE: CASE EVENT DATE: 201812
